FAERS Safety Report 23755173 (Version 1)
Quarter: 2024Q2

REPORT INFORMATION
  Report Type: Other
  Country: IT (occurrence: None)
  Receive Date: 20240418
  Receipt Date: 20240418
  Transmission Date: 20240716
  Serious: Yes (Other)
  Sender: FDA-Public Use
  Company Number: IT-ROCHE-3545103

PATIENT
  Age: 43 Year
  Sex: Female

DRUGS (6)
  1. BEVACIZUMAB [Suspect]
     Active Substance: BEVACIZUMAB
     Indication: Colorectal cancer
     Dosage: 12 CYCLES WITH FOLFOX?5 CYCLES WITH FLUOROURACIL
     Route: 065
  2. FLUOROURACIL [Suspect]
     Active Substance: FLUOROURACIL
     Indication: Colorectal cancer
     Route: 065
  3. LEUCOVORIN [Concomitant]
     Active Substance: LEUCOVORIN\LEUCOVORIN CALCIUM
  4. OXALIPLATIN [Concomitant]
     Active Substance: OXALIPLATIN
  5. IRINOTECAN [Concomitant]
     Active Substance: IRINOTECAN
  6. AFLIBERCEPT [Concomitant]
     Active Substance: AFLIBERCEPT

REACTIONS (3)
  - Disease progression [Unknown]
  - Metastases to liver [Unknown]
  - Metastases to lung [Unknown]
